FAERS Safety Report 17079721 (Version 1)
Quarter: 2019Q4

REPORT INFORMATION
  Report Type: Spontaneous
  Country: US (occurrence: US)
  Receive Date: 20191127
  Receipt Date: 20191127
  Transmission Date: 20200122
  Serious: No
  Sender: FDA-Public Use
  Company Number: US-AUROBINDO-AUR-APL-2019-014827

PATIENT

DRUGS (1)
  1. GABAPENTIN TABLETS USP 600MG [Suspect]
     Active Substance: GABAPENTIN
     Indication: NEUROPATHY PERIPHERAL
     Route: 065

REACTIONS (5)
  - Product substitution issue [Unknown]
  - Pain [Unknown]
  - Off label use [Unknown]
  - Hypoaesthesia [Unknown]
  - Drug ineffective [Unknown]
